FAERS Safety Report 5093073-7 (Version None)
Quarter: 2006Q3

REPORT INFORMATION
  Report Type: 
  Country: None (occurrence: None)
  Receive Date: 20060828
  Receipt Date: 20060815
  Transmission Date: 20061208
  Serious: Yes (Hospitalization)
  Sender: FDA-Public Use
  Company Number: 2006099725

PATIENT
  Sex: 0

DRUGS (3)
  1. LYRICA [Suspect]
     Indication: DRUG USE FOR UNKNOWN INDICATION
     Dosage: 300MG (DAILY), ORAL
     Route: 048
  2. ALPRAZOLAM [Concomitant]
  3. MAO INHIBITORS (MAO INHIBITORS) [Concomitant]

REACTIONS (2)
  - FATIGUE [None]
  - SEDATION [None]
